FAERS Safety Report 7951707-0 (Version None)
Quarter: 2011Q4

REPORT INFORMATION
  Report Type: 
  Country: None (occurrence: None)
  Receive Date: 20111201
  Receipt Date: 20111124
  Transmission Date: 20120403
  Serious: Yes (Other)
  Sender: FDA-Public Use
  Company Number: US-JNJFOC-20111111079

PATIENT
  Sex: Male
  Weight: 97.52 kg

DRUGS (3)
  1. UNSPECIFED FENTANYL TRANSDERMAL PATCH [Suspect]
     Indication: PAIN
     Route: 062
     Dates: start: 20010101
  2. DURAGESIC-100 [Suspect]
     Indication: PAIN
     Route: 062
  3. UNSPECIFED FENTANYL TRANSDERMAL PATCH [Suspect]
     Route: 062
     Dates: start: 20010101, end: 20010101

REACTIONS (5)
  - DYSPNOEA [None]
  - THROMBOSIS [None]
  - THERAPEUTIC RESPONSE DECREASED [None]
  - ADVERSE EVENT [None]
  - FEELING ABNORMAL [None]
